FAERS Safety Report 13428399 (Version 1)
Quarter: 2017Q2

REPORT INFORMATION
  Report Type: Spontaneous
  Country: IT (occurrence: IT)
  Receive Date: 20170411
  Receipt Date: 20170411
  Transmission Date: 20170830
  Serious: Yes (Other)
  Sender: FDA-Public Use
  Company Number: IT-FRESENIUS KABI-FK201702824

PATIENT
  Age: 1 Month
  Sex: Male

DRUGS (1)
  1. PROPRANOLOL HYDROCHLORIDE (MANUFACTURER UNKNOWN) [Suspect]
     Active Substance: PROPRANOLOL HYDROCHLORIDE
     Indication: HAEMANGIOMA
     Route: 048

REACTIONS (3)
  - Product use issue [Unknown]
  - Hypoglycaemia [Unknown]
  - Off label use [Unknown]
